FAERS Safety Report 9424504 (Version 1)
Quarter: 2013Q3

REPORT INFORMATION
  Report Type: Spontaneous
  Country: NL (occurrence: None)
  Receive Date: 20130725
  Receipt Date: 20130725
  Transmission Date: 20140515
  Serious: Yes (Hospitalization)
  Sender: FDA-Public Use
  Company Number: NL-RRD-13-00003

PATIENT
  Age: 8 Year
  Sex: Female

DRUGS (9)
  1. COSMEGEN [Suspect]
     Indication: SARCOMA
     Route: 042
     Dates: start: 20131005
  2. IFOSFAMIDE [Suspect]
     Indication: SARCOMA
     Dosage: 2 DAYS EVERY 3 WEEKS
     Dates: start: 20131005
  3. VINCRISTINE [Suspect]
     Indication: SARCOMA
     Route: 042
     Dates: start: 20131005
  4. DOXORUBICIN (DOXORUBICIN) (DOXORUBICIN) [Suspect]
     Indication: SARCOMA
     Dosage: 2 DAYS EVERY 3 WEEKS
     Route: 042
     Dates: start: 20131005
  5. NIFEDIPINE [Concomitant]
  6. ANLODIPINE (ANLODIPINE) (UNKNOWN) (AMLODIPINE) [Concomitant]
  7. MARCROGOL (MACROGOL) (UNKNOWN) (MACROGOL) [Concomitant]
  8. FILGRASTIN (FILGRASTIN) (UNKNOWN) (FILGRASTIN) [Concomitant]
  9. PARACETAMOL (PARACETAMOL) (UNKNOWN) (PARACETAMOL) [Concomitant]

REACTIONS (2)
  - Neutropenic infection [None]
  - Hypophosphataemia [None]
